FAERS Safety Report 9123069 (Version 1)
Quarter: 2013Q1

REPORT INFORMATION
  Report Type: Report from Study
  Country: US (occurrence: US)
  Receive Date: 20130115
  Receipt Date: 20130115
  Transmission Date: 20140127
  Serious: Yes (Disabling, Other)
  Sender: FDA-Public Use
  Company Number: US-BAYER-2012-124070

PATIENT
  Age: 83 Year
  Sex: Female

DRUGS (3)
  1. STIVARGA [Suspect]
     Indication: RECTOSIGMOID CANCER
     Dosage: DAILY DOSE 160 MG
     Route: 048
     Dates: start: 20121029
  2. STIVARGA [Suspect]
     Indication: RECTOSIGMOID CANCER
     Dosage: 2 TABLETS DAILY
     Route: 048
     Dates: start: 2012, end: 2012
  3. STIVARGA [Suspect]
     Indication: RECTOSIGMOID CANCER
     Dosage: 160 MG, UNK
     Route: 048
     Dates: start: 201211

REACTIONS (6)
  - Platelet count decreased [None]
  - Palmar-plantar erythrodysaesthesia syndrome [None]
  - Pyrexia [None]
  - Blister [Not Recovered/Not Resolved]
  - Stomatitis [None]
  - Abasia [None]
